FAERS Safety Report 25372080 (Version 5)
Quarter: 2025Q3

REPORT INFORMATION
  Report Type: Report from Study
  Country: US (occurrence: US)
  Receive Date: 20250529
  Receipt Date: 20250930
  Transmission Date: 20251020
  Serious: Yes (Hospitalization, Other)
  Sender: TAKEDA
  Company Number: US-TAKEDA-2025TUS049471

PATIENT
  Sex: Female
  Weight: 68 kg

DRUGS (46)
  1. HUMAN IMMUNOGLOBULIN G\HYALURONIDASE RECOMBINANT HUMAN [Suspect]
     Active Substance: HUMAN IMMUNOGLOBULIN G\HYALURONIDASE (HUMAN RECOMBINANT)
     Indication: Hypogammaglobulinaemia
     Dosage: 35 GRAM, Q4WEEKS
  2. ACETAMINOPHEN [Concomitant]
     Active Substance: ACETAMINOPHEN
  3. EPINEPHRINE [Concomitant]
     Active Substance: EPINEPHRINE
  4. SODIUM CHLORIDE [Concomitant]
     Active Substance: SODIUM CHLORIDE
  5. ATORVASTATIN CALCIUM [Concomitant]
     Active Substance: ATORVASTATIN CALCIUM
  6. CEPHALEXIN [Concomitant]
     Active Substance: CEPHALEXIN
  7. DULOXETINE HYDROCHLORIDE [Concomitant]
     Active Substance: DULOXETINE HYDROCHLORIDE
  8. FAMOTIDINE [Concomitant]
     Active Substance: FAMOTIDINE
  9. FUROSEMIDE [Concomitant]
     Active Substance: FUROSEMIDE
  10. LEVOTHYROXINE SODIUM [Concomitant]
     Active Substance: LEVOTHYROXINE SODIUM
  11. MELOXICAM [Concomitant]
     Active Substance: MELOXICAM
  12. METHOCARBAMOL [Concomitant]
     Active Substance: METHOCARBAMOL
  13. Dulcolax [Concomitant]
  14. METHENAMINE HIPPURATE [Concomitant]
     Active Substance: METHENAMINE HIPPURATE
  15. MOTEGRITY [Concomitant]
     Active Substance: PRUCALOPRIDE SUCCINATE
  16. VILAZODONE HYDROCHLORIDE [Concomitant]
     Active Substance: VILAZODONE HYDROCHLORIDE
  17. REXULTI [Concomitant]
     Active Substance: BREXPIPRAZOLE
  18. FESOTERODINE FUMARATE [Concomitant]
     Active Substance: FESOTERODINE FUMARATE
  19. ESOMEPRAZOLE MAGNESIUM [Concomitant]
     Active Substance: ESOMEPRAZOLE MAGNESIUM
  20. ALBUTEROL SULFATE [Concomitant]
     Active Substance: ALBUTEROL SULFATE
  21. Hyper [Concomitant]
  22. LINZESS [Concomitant]
     Active Substance: LINACLOTIDE
  23. TRELEGY ELLIPTA [Concomitant]
     Active Substance: FLUTICASONE FUROATE\UMECLIDINIUM BROMIDE\VILANTEROL TRIFENATATE
  24. BISACODYL [Concomitant]
     Active Substance: BISACODYL
  25. LIDOCAINE [Concomitant]
     Active Substance: LIDOCAINE
  26. DIAZEPAM [Concomitant]
     Active Substance: DIAZEPAM
  27. MUCINEX [Concomitant]
     Active Substance: GUAIFENESIN
  28. PREGABALIN [Concomitant]
     Active Substance: PREGABALIN
  29. CALCIUM CITRATE [Concomitant]
     Active Substance: CALCIUM CITRATE
  30. ZOLPIDEM TARTRATE [Concomitant]
     Active Substance: ZOLPIDEM TARTRATE
  31. ASPIRIN [Concomitant]
     Active Substance: ASPIRIN
  32. MONTELUKAST SODIUM [Concomitant]
     Active Substance: MONTELUKAST SODIUM
  33. PROMETHAZINE HYDROCHLORIDE [Concomitant]
     Active Substance: PROMETHAZINE HYDROCHLORIDE
  34. DIPHENHYDRAMINE HYDROCHLORIDE [Concomitant]
     Active Substance: DIPHENHYDRAMINE HYDROCHLORIDE
  35. SYMPROIC [Concomitant]
     Active Substance: NALDEMEDINE TOSYLATE
  36. VITAMIN D3 [Concomitant]
     Active Substance: CHOLECALCIFEROL
  37. ATROPINE\DIPHENOXYLATE [Concomitant]
     Active Substance: ATROPINE\DIPHENOXYLATE
  38. ZYRTEC [Concomitant]
     Active Substance: CETIRIZINE HYDROCHLORIDE
  39. ESTRADIOL [Concomitant]
     Active Substance: ESTRADIOL
  40. MYRBETRIQ [Concomitant]
     Active Substance: MIRABEGRON
  41. ONDANSETRON HYDROCHLORIDE [Concomitant]
     Active Substance: ONDANSETRON HYDROCHLORIDE
  42. POTASSIUM CHLORIDE [Concomitant]
     Active Substance: POTASSIUM CHLORIDE
  43. TRIAMCINOLONE ACETONIDE [Concomitant]
     Active Substance: TRIAMCINOLONE ACETONIDE
  44. HYDROMORPHONE HCL [Concomitant]
     Active Substance: HYDROMORPHONE HYDROCHLORIDE
  45. MAGNESIUM CITRATE [Concomitant]
     Active Substance: MAGNESIUM CITRATE
  46. ALBUTEROL SULFATE [Concomitant]
     Active Substance: ALBUTEROL SULFATE

REACTIONS (6)
  - Subdural haematoma [Unknown]
  - Cerebral haemorrhage [Unknown]
  - Urinary tract infection [Unknown]
  - Fall [Unknown]
  - Synovial cyst [Unknown]
  - Head injury [Unknown]
